FAERS Safety Report 6889538-5 (Version None)
Quarter: 2010Q3

REPORT INFORMATION
  Report Type: 
  Country: None (occurrence: None)
  Receive Date: 20100730
  Receipt Date: 20080305
  Transmission Date: 20110219
  Serious: No
  Sender: FDA-Public Use
  Company Number: US-PFIZER INC-2008021214

PATIENT
  Sex: Female
  Weight: 68.181 kg

DRUGS (2)
  1. LIPITOR [Suspect]
     Indication: BLOOD CHOLESTEROL INCREASED
     Dates: start: 20080226, end: 20080101
  2. CARDIOVASCULAR SYSTEM DRUGS [Concomitant]
     Indication: BLOOD PRESSURE ABNORMAL

REACTIONS (2)
  - MUSCULAR WEAKNESS [None]
  - MYALGIA [None]
